FAERS Safety Report 11087744 (Version 1)
Quarter: 2015Q2

REPORT INFORMATION
  Report Type: Spontaneous
  Country: US (occurrence: US)
  Receive Date: 20150504
  Receipt Date: 20150504
  Transmission Date: 20150821
  Serious: Yes (Other)
  Sender: FDA-Public Use
  Company Number: US-BAYER-2015-183140

PATIENT
  Age: 27 Year
  Sex: Male

DRUGS (1)
  1. MIRENA [Suspect]
     Active Substance: LEVONORGESTREL

REACTIONS (2)
  - Penile haemorrhage [Not Recovered/Not Resolved]
  - Urethral injury [Not Recovered/Not Resolved]

NARRATIVE: CASE EVENT DATE: 201504
